FAERS Safety Report 7292865-3 (Version None)
Quarter: 2011Q1

REPORT INFORMATION
  Report Type: 
  Country: None (occurrence: None)
  Receive Date: 20110215
  Receipt Date: 20110202
  Transmission Date: 20110831
  Serious: Yes (Hospitalization)
  Sender: FDA-Public Use
  Company Number: PHHY2011JP08615

PATIENT
  Age: 48 Year
  Sex: Female

DRUGS (1)
  1. DIOVAN [Suspect]

REACTIONS (6)
  - RENAL IMPAIRMENT [None]
  - WHITE BLOOD CELL COUNT INCREASED [None]
  - DRUG RASH WITH EOSINOPHILIA AND SYSTEMIC SYMPTOMS [None]
  - HEPATIC ENZYME INCREASED [None]
  - C-REACTIVE PROTEIN INCREASED [None]
  - BLOOD PRESSURE SYSTOLIC DECREASED [None]
